FAERS Safety Report 11058292 (Version 2)
Quarter: 2015Q2

REPORT INFORMATION
  Report Type: Spontaneous
  Country: CN (occurrence: None)
  Receive Date: 20150421
  Receipt Date: 20150421
  Transmission Date: 20150821
  Serious: Yes (Death, Hospitalization, Other)
  Sender: FDA-Public Use
  Company Number: 2015CVI00006

PATIENT

DRUGS (1)
  1. ZINACEF (CEFUROXIME) INJECTION [Suspect]
     Active Substance: CEFUROXIME SODIUM

REACTIONS (2)
  - Apnoea [None]
  - Loss of consciousness [None]
